FAERS Safety Report 8775979 (Version 2)
Quarter: 2012Q4

REPORT INFORMATION
  Report Type: 
  Country: SE (occurrence: SE)
  Receive Date: 20120910
  Receipt Date: 20120914
  Transmission Date: 20130627
  Serious: Yes (Death)
  Sender: FDA-Public Use
  Company Number: SE-BAXTER-2012BAX015821

PATIENT
  Age: 4 Year
  Sex: Male

DRUGS (1)
  1. MANNITOL [Suspect]
     Indication: MEDICATION ERROR
     Route: 042
     Dates: start: 20120828, end: 20120828

REACTIONS (5)
  - Brain neoplasm malignant [Fatal]
  - Product label confusion [Unknown]
  - Wrong drug administered [Recovered/Resolved]
  - Polyuria [Not Recovered/Not Resolved]
  - Condition aggravated [Not Recovered/Not Resolved]
